FAERS Safety Report 12969392 (Version 1)
Quarter: 2016Q4

REPORT INFORMATION
  Report Type: Spontaneous
  Country: BR (occurrence: BR)
  Receive Date: 20161123
  Receipt Date: 20161123
  Transmission Date: 20170207
  Serious: Yes (Other)
  Sender: FDA-Public Use
  Company Number: BR-PFIZER INC-2016462445

PATIENT
  Age: 47 Year
  Sex: Male

DRUGS (4)
  1. ENBREL [Suspect]
     Active Substance: ETANERCEPT
     Dosage: UNK
     Dates: start: 20160305, end: 20160602
  2. ARAVA [Suspect]
     Active Substance: LEFLUNOMIDE
     Dosage: UNK
  3. PREDNISONE. [Suspect]
     Active Substance: PREDNISONE
     Dosage: UNK
  4. METHOTREXATE SODIUM. [Suspect]
     Active Substance: METHOTREXATE SODIUM
     Dosage: UNK

REACTIONS (3)
  - Tuberculosis [Unknown]
  - Disease progression [Unknown]
  - Arthritis [Unknown]

NARRATIVE: CASE EVENT DATE: 2016
